FAERS Safety Report 7781181-9 (Version None)
Quarter: 2011Q3

REPORT INFORMATION
  Report Type: 
  Country: None (occurrence: None)
  Receive Date: 20110927
  Receipt Date: 20110912
  Transmission Date: 20111222
  Serious: Yes (Life-Threatening, Hospitalization, Other)
  Sender: FDA-Public Use
  Company Number: TN-WATSON-2011-15259

PATIENT
  Age: 43 Year
  Sex: Female

DRUGS (1)
  1. MEPROBAMATE [Suspect]
     Indication: PRODUCT USED FOR UNKNOWN INDICATION
     Dosage: 60 G, SINGLE (150 TABLETS)
     Route: 048

REACTIONS (7)
  - LOSS OF CONSCIOUSNESS [None]
  - CARDIOVASCULAR INSUFFICIENCY [None]
  - PANCREATITIS ACUTE [None]
  - TOXICITY TO VARIOUS AGENTS [None]
  - RESPIRATORY DEPRESSION [None]
  - EXTRAPYRAMIDAL DISORDER [None]
  - SUICIDE ATTEMPT [None]
